FAERS Safety Report 13366914 (Version 1)
Quarter: 2017Q1

REPORT INFORMATION
  Report Type: Spontaneous
  Country: US (occurrence: US)
  Receive Date: 20170324
  Receipt Date: 20170324
  Transmission Date: 20170429
  Serious: No
  Sender: FDA-Public Use
  Company Number: US-BAYER-2017-055921

PATIENT
  Sex: Female
  Weight: 99.77 kg

DRUGS (1)
  1. MAGNEVIST [Suspect]
     Active Substance: GADOPENTETATE DIMEGLUMINE
     Dosage: 19.5 ML, ONCE
     Dates: start: 20170321, end: 20170321

REACTIONS (1)
  - Abdominal distension [None]
